FAERS Safety Report 17307466 (Version 1)
Quarter: 2020Q1

REPORT INFORMATION
  Report Type: Spontaneous
  Country: US (occurrence: US)
  Receive Date: 20200107
  Receipt Date: 20200107
  Transmission Date: 20200409
  Serious: No
  Sender: FDA-Public Use
  Company Number: None

PATIENT
  Age: 13 Year
  Sex: Female

DRUGS (1)
  1. TOBI PODHALER [Suspect]
     Active Substance: TOBRAMYCIN
     Route: 055

REACTIONS (3)
  - Condition aggravated [None]
  - Pneumonia [None]
  - Cystic fibrosis [None]

NARRATIVE: CASE EVENT DATE: 20190701
